FAERS Safety Report 8571541-0 (Version None)
Quarter: 2012Q3

REPORT INFORMATION
  Report Type: 
  Country: None (occurrence: None)
  Receive Date: 20120806
  Receipt Date: 20120730
  Transmission Date: 20120928
  Serious: Yes (Other)
  Sender: FDA-Public Use
  Company Number: PHHY2012BR066522

PATIENT
  Age: 63 Year
  Sex: Female

DRUGS (3)
  1. SYSTEN CONTI [Suspect]
  2. COMBIPATCH [Suspect]
     Indication: HORMONE REPLACEMENT THERAPY
     Dosage: 1 DF, Q96H
     Route: 062
  3. COMBIPATCH [Suspect]
     Dosage: UNK UKN, UNK
     Route: 062
     Dates: start: 20120727

REACTIONS (3)
  - HAEMORRHAGE [None]
  - DRUG INTOLERANCE [None]
  - PRODUCT ADHESION ISSUE [None]
